FAERS Safety Report 13204226 (Version 2)
Quarter: 2017Q1

REPORT INFORMATION
  Report Type: Spontaneous
  Country: BR (occurrence: BR)
  Receive Date: 20170209
  Receipt Date: 20170210
  Transmission Date: 20170428
  Serious: Yes (Hospitalization, Other)
  Sender: FDA-Public Use
  Company Number: BR-009507513-1702BRA003270

PATIENT
  Age: 53 Year
  Sex: Female
  Weight: 70 kg

DRUGS (6)
  1. DIAMICRON [Concomitant]
     Active Substance: GLICLAZIDE
     Indication: DIABETES MELLITUS
     Dosage: 60 MG (1 TABLET)/DAILY
     Route: 048
     Dates: start: 2008, end: 201606
  2. ABLOK PLUS [Concomitant]
     Active Substance: ATENOLOL\CHLORTHALIDONE
     Indication: HYPERTENSION
     Dosage: 50 MG (1 TABLET)/DAILY
     Route: 048
     Dates: start: 1997
  3. DIAMICRON [Concomitant]
     Active Substance: GLICLAZIDE
     Dosage: 120 MG (2 TABLET)/DAILY
     Route: 048
     Dates: start: 201606
  4. OMEPRAZOLE. [Concomitant]
     Active Substance: OMEPRAZOLE
     Indication: PAIN PROPHYLAXIS
     Dosage: UNK
     Dates: start: 2013
  5. JANUVIA [Suspect]
     Active Substance: SITAGLIPTIN PHOSPHATE
     Indication: DIABETES MELLITUS
     Dosage: 100 MG, QAM
     Route: 048
     Dates: start: 2008, end: 20170206
  6. METFORMIN [Concomitant]
     Active Substance: METFORMIN HYDROCHLORIDE
     Indication: DIABETES MELLITUS
     Dosage: 2 TABLETS/DAILY
     Route: 048
     Dates: start: 1997

REACTIONS (5)
  - Product packaging issue [Unknown]
  - Blood pressure abnormal [Recovering/Resolving]
  - Drug dose omission [Unknown]
  - Diabetes mellitus [Not Recovered/Not Resolved]
  - Lung infection [Recovered/Resolved]

NARRATIVE: CASE EVENT DATE: 2011
